FAERS Safety Report 5810781-8 (Version None)
Quarter: 2008Q3

REPORT INFORMATION
  Report Type: 
  Country: None (occurrence: None)
  Receive Date: 20080715
  Receipt Date: 20080708
  Transmission Date: 20090109
  Serious: Yes (Hospitalization, Other)
  Sender: FDA-Public Use
  Company Number: US-AMGEN-KDL287868

PATIENT
  Sex: Female
  Weight: 61.7 kg

DRUGS (11)
  1. ENBREL [Suspect]
     Indication: RHEUMATOID ARTHRITIS
     Route: 058
     Dates: start: 19990101
  2. AMLODIPINE BESYLATE [Concomitant]
  3. DIOVAN [Concomitant]
  4. PROZAC [Concomitant]
  5. DARVOCET-N 100 [Concomitant]
  6. FORTEO [Concomitant]
  7. LASIX [Concomitant]
  8. ATIVAN [Concomitant]
  9. ACIPHEX [Concomitant]
  10. ELAVIL [Concomitant]
  11. NEBIVOLOL HCL [Concomitant]

REACTIONS (16)
  - BREAST CANCER [None]
  - CELLULITIS [None]
  - CERVICAL VERTEBRAL FRACTURE [None]
  - COLON CANCER [None]
  - FACIAL BONES FRACTURE [None]
  - FALL [None]
  - INJECTION SITE ERYTHEMA [None]
  - INJECTION SITE PRURITUS [None]
  - LOCALISED INFECTION [None]
  - OPEN WOUND [None]
  - OSTEOPOROSIS [None]
  - RHEUMATOID ARTHRITIS [None]
  - RIB FRACTURE [None]
  - STAPHYLOCOCCAL INFECTION [None]
  - TOOTH FRACTURE [None]
  - WOUND SECRETION [None]
